FAERS Safety Report 9437726 (Version 2)
Quarter: 2013Q3

REPORT INFORMATION
  Report Type: Report from Study
  Country: AU (occurrence: AU)
  Receive Date: 20130802
  Receipt Date: 20130821
  Transmission Date: 20140515
  Serious: Yes (Hospitalization, Other)
  Sender: FDA-Public Use
  Company Number: PHHY2013AU082746

PATIENT
  Age: 56 Year
  Sex: Female

DRUGS (3)
  1. CLOZARIL [Suspect]
     Indication: SCHIZOPHRENIA
     Dosage: 300 MG, QD
     Dates: start: 20110714, end: 20130717
  2. FLUOXETINE [Concomitant]
     Indication: DEPRESSION
     Dosage: 60 MG, QD
     Route: 048
  3. LITHIUM [Concomitant]
     Indication: DEPRESSION
     Dosage: 675 MG, QD
     Route: 048

REACTIONS (1)
  - Pneumatosis intestinalis [Not Recovered/Not Resolved]
